FAERS Safety Report 26145481 (Version 1)
Quarter: 2025Q4

REPORT INFORMATION
  Report Type: Spontaneous
  Country: US (occurrence: US)
  Receive Date: 20251211
  Receipt Date: 20251211
  Transmission Date: 20260117
  Serious: Yes (Death, Life-Threatening, Hospitalization)
  Sender: SIGMA TAU
  Company Number: US-LEADIANT BIOSCIENCES, INC.-2025LBI000293

PATIENT
  Age: 72 Year
  Sex: Male

DRUGS (12)
  1. ABELCET [Suspect]
     Active Substance: AMPHOTERICIN B\DIMYRISTOYLPHOSPHATIDYLCHOLINE, DL-\DIMYRISTOYLPHOSPHATIDYLGLYCEROL, DL-
     Indication: Aspergillus infection
     Route: 065
  2. ABELCET [Suspect]
     Active Substance: AMPHOTERICIN B\DIMYRISTOYLPHOSPHATIDYLCHOLINE, DL-\DIMYRISTOYLPHOSPHATIDYLGLYCEROL, DL-
     Indication: Bronchopulmonary aspergillosis
  3. DEXAMETHASONE [Suspect]
     Active Substance: DEXAMETHASONE
     Indication: Drug therapy
     Dosage: 10 MILLIGRAM
     Route: 042
  4. MICAFUNGIN [Suspect]
     Active Substance: MICAFUNGIN SODIUM
     Indication: Aspergillus infection
  5. MICAFUNGIN [Suspect]
     Active Substance: MICAFUNGIN SODIUM
     Indication: Bronchopulmonary aspergillosis
  6. METHYLPREDNISOLONE [Suspect]
     Active Substance: METHYLPREDNISOLONE
     Indication: Drug therapy
     Dosage: 1 MILLIGRAM/KILOGRAM, QD
     Route: 065
  7. SIROLIMUS [Suspect]
     Active Substance: SIROLIMUS
     Indication: Immunosuppressant drug therapy
     Route: 065
  8. ISAVUCONAZOLE [Suspect]
     Active Substance: ISAVUCONAZOLE
     Indication: Aspergillus infection
     Dosage: UNK
     Route: 065
  9. ISAVUCONAZOLE [Suspect]
     Active Substance: ISAVUCONAZOLE
     Indication: Bronchopulmonary aspergillosis
  10. TACROLIMUS [Suspect]
     Active Substance: TACROLIMUS
     Indication: Immunosuppressant drug therapy
     Route: 065
  11. EPINEPHRINE [Concomitant]
     Active Substance: EPINEPHRINE
     Indication: Drug therapy
     Dosage: UNK
     Route: 030
  12. DIPHENHYDRAMINE [Concomitant]
     Active Substance: DIPHENHYDRAMINE
     Indication: Drug therapy
     Dosage: UNK
     Route: 042

REACTIONS (6)
  - Drug ineffective [Fatal]
  - Aspergillus infection [Fatal]
  - Tracheobronchitis [Fatal]
  - Bronchopulmonary aspergillosis [Fatal]
  - Acute kidney injury [Fatal]
  - Respiratory failure [Fatal]
